FAERS Safety Report 10484088 (Version 1)
Quarter: 2014Q3

REPORT INFORMATION
  Report Type: Spontaneous
  Country: US (occurrence: None)
  Receive Date: 20140925
  Receipt Date: 20140925
  Transmission Date: 20150326
  Serious: Yes (Other)
  Sender: FDA-Public Use
  Company Number: 2014P1003125

PATIENT
  Age: 09 Year
  Sex: Male
  Weight: 108.9 kg

DRUGS (2)
  1. FLURAZEPAM [Concomitant]
     Active Substance: FLURAZEPAM\FLURAZEPAM HYDROCHLORIDE
  2. DEXEDRINE SPANSULE [Suspect]
     Active Substance: DEXTROAMPHETAMINE SULFATE
     Indication: BIPOLAR DISORDER
     Dates: start: 19980915, end: 19981013

REACTIONS (13)
  - Liver disorder [None]
  - Crohn^s disease [None]
  - Depression [None]
  - Aggression [None]
  - Condition aggravated [None]
  - Gynaecomastia [None]
  - Chest pain [None]
  - Insomnia [None]
  - Generalised anxiety disorder [None]
  - Infertility male [None]
  - Hepatic enzyme increased [None]
  - Weight increased [None]
  - Off label use [None]

NARRATIVE: CASE EVENT DATE: 199809
